FAERS Safety Report 20552518 (Version 2)
Quarter: 2022Q4

REPORT INFORMATION
  Report Type: Spontaneous
  Country: GB (occurrence: GB)
  Receive Date: 20220304
  Receipt Date: 20221122
  Transmission Date: 20230113
  Serious: Yes (Other)
  Sender: FDA-Public Use
  Company Number: GB-ASTPRD-AER-2022-000820

PATIENT
  Age: 28 Year
  Sex: Male

DRUGS (1)
  1. GILTERITINIB [Suspect]
     Active Substance: GILTERITINIB
     Indication: Product used for unknown indication
     Dosage: 120 MG, ONCE DAILY (CYCLE)
     Route: 065

REACTIONS (2)
  - Graft versus host disease [Unknown]
  - Febrile neutropenia [Unknown]
